FAERS Safety Report 4627553-2 (Version None)
Quarter: 2005Q2

REPORT INFORMATION
  Report Type: 
  Country: None (occurrence: None)
  Receive Date: 20050405
  Receipt Date: 20050322
  Transmission Date: 20051028
  Serious: Yes (Hospitalization, Other)
  Sender: FDA-Public Use
  Company Number: 2005048992

PATIENT
  Sex: Female
  Weight: 79.8331 kg

DRUGS (3)
  1. NARDIL [Suspect]
     Indication: DEPRESSION
     Dosage: 30 MG (15 MG, 2 IN 1 D), ORAL
     Route: 048
     Dates: start: 19820101
  2. ANTIHISTAMINES (ANTIHISTAMINES) [Suspect]
     Indication: ILL-DEFINED DISORDER
  3. ALPRAZOLAM [Concomitant]

REACTIONS (18)
  - AMNESIA [None]
  - BLOOD PRESSURE FLUCTUATION [None]
  - CEREBRAL HAEMORRHAGE [None]
  - CIRCADIAN RHYTHM SLEEP DISORDER [None]
  - CONVULSION [None]
  - DRUG INEFFECTIVE [None]
  - DYSURIA [None]
  - FEELING ABNORMAL [None]
  - HEMIPARESIS [None]
  - HYPERSENSITIVITY [None]
  - HYPERSOMNIA [None]
  - INSOMNIA [None]
  - PANIC REACTION [None]
  - PHARMACEUTICAL PRODUCT COMPLAINT [None]
  - REFUSAL OF TREATMENT BY PATIENT [None]
  - RENAL DISORDER [None]
  - URINARY TRACT INFECTION [None]
  - VOMITING [None]
